FAERS Safety Report 5119469-2 (Version None)
Quarter: 2006Q3

REPORT INFORMATION
  Report Type: 
  Country: None (occurrence: None)
  Receive Date: 20060928
  Receipt Date: 20060919
  Transmission Date: 20061208
  Serious: No
  Sender: FDA-Public Use
  Company Number: 230049

PATIENT
  Age: 10 Year
  Sex: Male
  Weight: 30.4 kg

DRUGS (6)
  1. NUTROPIN AQ [Suspect]
     Indication: GROWTH HORMONE DEFICIENCY
     Dosage: 1 MG, 7/WEEK, SUBCUTANEOUS
     Route: 058
     Dates: start: 20010822
  2. LEVOXYL [Concomitant]
  3. LUPRON DEPOT LEUPROLIDE ACETATE) [Concomitant]
  4. MELATONIN (MELATONIN) [Concomitant]
  5. CYPROHEPTADINE (CYPROHEPTADINE HYDROCHLORIDE) [Concomitant]
  6. PREVACID [Concomitant]

REACTIONS (2)
  - NEOPLASM RECURRENCE [None]
  - OSTEOCHONDROMA [None]
